FAERS Safety Report 8297255-2 (Version None)
Quarter: 2012Q1

REPORT INFORMATION
  Report Type: 
  Country: None (occurrence: None)
  Receive Date: 20120322
  Receipt Date: 20120104
  Transmission Date: 20120608
  Serious: Yes (Hospitalization)
  Sender: FDA-Public Use
  Company Number: UTC-014217

PATIENT
  Age: 73 Year
  Sex: Male
  Weight: 106.8 kg

DRUGS (4)
  1. TYVASO [Suspect]
     Indication: PULMONARY ARTERIAL HYPERTENSION
     Dosage: 72 MCG (18 MCG,4 IN 1 D),INHALATION
     Route: 055
     Dates: start: 20111213
  2. DIURETICS (DIURETICS) [Concomitant]
  3. ASPIRIN [Concomitant]
  4. TRACLEER [Concomitant]

REACTIONS (1)
  - FLUID RETENTION [None]
